FAERS Safety Report 4973378-8 (Version None)
Quarter: 2006Q2

REPORT INFORMATION
  Report Type: 
  Country: None (occurrence: None)
  Receive Date: 20060414
  Receipt Date: 20060202
  Transmission Date: 20061013
  Serious: Yes (Other)
  Sender: FDA-Public Use
  Company Number: SY-AVENTIS-200611261GDDC

PATIENT
  Sex: Female
  Weight: 70 kg

DRUGS (3)
  1. LANTUS [Suspect]
     Indication: DIABETES MELLITUS NON-INSULIN-DEPENDENT
     Route: 058
     Dates: start: 20051201, end: 20060208
  2. DIAMICRON [Concomitant]
     Indication: DIABETES MELLITUS
     Dosage: DOSE: 3 TABLETS
     Route: 048
  3. ROSIGLITAZONE [Concomitant]
     Indication: DIABETES MELLITUS
     Dosage: DOSE: 2 TABLETS
     Route: 048

REACTIONS (8)
  - BLOOD GLUCOSE INCREASED [None]
  - ERYTHEMA [None]
  - HEPATIC ENZYME INCREASED [None]
  - HEPATIC TRAUMA [None]
  - HEPATOMEGALY [None]
  - HYPERSENSITIVITY [None]
  - PRURITUS [None]
  - URTICARIA [None]
